FAERS Safety Report 4965300-5 (Version None)
Quarter: 2006Q2

REPORT INFORMATION
  Report Type: 
  Country: None (occurrence: None)
  Receive Date: 20060406
  Receipt Date: 20050629
  Transmission Date: 20061013
  Serious: Yes (Hospitalization, Other)
  Sender: FDA-Public Use
  Company Number: US-MERCK-0507USA00207

PATIENT
  Age: 56 Year
  Sex: Male
  Weight: 79 kg

DRUGS (3)
  1. VIOXX [Suspect]
     Indication: ARTHRITIS
     Route: 048
     Dates: start: 20011108, end: 20040617
  2. ACETAMINOPHEN [Concomitant]
     Route: 065
  3. VIOXX [Suspect]
     Indication: SHOULDER PAIN
     Route: 048
     Dates: start: 20011108, end: 20040617

REACTIONS (4)
  - DIVERTICULITIS [None]
  - LIMB INJURY [None]
  - MYOCARDIAL INFARCTION [None]
  - THROMBOSIS [None]
